FAERS Safety Report 6748668-9 (Version None)
Quarter: 2010Q2

REPORT INFORMATION
  Report Type: 
  Country: None (occurrence: None)
  Receive Date: 20100601
  Receipt Date: 20100526
  Transmission Date: 20101027
  Serious: Yes (Hospitalization)
  Sender: FDA-Public Use
  Company Number: DE-JNJFOC-20100509456

PATIENT
  Age: 81 Year
  Sex: Female
  Weight: 56 kg

DRUGS (13)
  1. DURAGESIC-100 [Suspect]
     Indication: DRUG USE FOR UNKNOWN INDICATION
     Route: 062
     Dates: end: 20071008
  2. DIPIPERON [Concomitant]
     Route: 048
  3. PANTOPRAZOLE SODIUM [Concomitant]
     Route: 048
     Dates: end: 20071001
  4. PANTOPRAZOLE SODIUM [Concomitant]
     Route: 048
     Dates: end: 20071001
  5. LAXOBERAL [Concomitant]
     Route: 048
  6. INSUMAN COMB [Concomitant]
     Route: 058
  7. LANTUS [Concomitant]
     Route: 058
  8. SPIRONOLACTONE [Concomitant]
     Route: 048
  9. BISOPROLOL [Concomitant]
     Route: 048
  10. CAPTOPRIL [Concomitant]
     Route: 048
  11. TROSPIUM CHLORIDE [Concomitant]
     Route: 048
  12. CEFUROXIME [Concomitant]
     Route: 042
  13. METHIONIN [Concomitant]
     Route: 048

REACTIONS (1)
  - FAECALOMA [None]
